FAERS Safety Report 6003461-X (Version None)
Quarter: 2008Q4

REPORT INFORMATION
  Report Type: 
  Country: None (occurrence: None)
  Receive Date: 20081215
  Receipt Date: 20081215
  Transmission Date: 20090506
  Serious: Yes (Other)
  Sender: FDA-Public Use
  Company Number: None

PATIENT
  Sex: Male
  Weight: 70.7611 kg

DRUGS (1)
  1. REMICADE [Suspect]
     Indication: CROHN'S DISEASE
     Dosage: 10 VIALS 8 WEEKS IV DRIP
     Route: 041
     Dates: start: 20060306, end: 20080808

REACTIONS (1)
  - LUPUS-LIKE SYNDROME [None]
